FAERS Safety Report 18034629 (Version 4)
Quarter: 2020Q3

REPORT INFORMATION
  Report Type: Report from Study
  Country: US (occurrence: US)
  Receive Date: 20200716
  Receipt Date: 20200930
  Transmission Date: 20201103
  Serious: No
  Sender: FDA-Public Use
  Company Number: NVSC2020US198428

PATIENT
  Sex: Female

DRUGS (1)
  1. COSENTYX [Suspect]
     Active Substance: SECUKINUMAB
     Indication: PSORIATIC ARTHROPATHY
     Dosage: 150 MG
     Route: 058

REACTIONS (5)
  - Nasopharyngitis [Not Recovered/Not Resolved]
  - Feeling abnormal [Unknown]
  - Anxiety [Unknown]
  - Illness [Unknown]
  - Depression [Unknown]
